FAERS Safety Report 5644746-6 (Version None)
Quarter: 2008Q1

REPORT INFORMATION
  Report Type: 
  Country: None (occurrence: None)
  Receive Date: 20080229
  Receipt Date: 20080214
  Transmission Date: 20080703
  Serious: No
  Sender: FDA-Public Use
  Company Number: A0664026A

PATIENT
  Age: 34 Year
  Sex: Female
  Weight: 56.8 kg

DRUGS (3)
  1. VALTREX [Suspect]
     Indication: GENITAL HERPES
     Dosage: 200MG PER DAY
     Route: 048
     Dates: start: 20070427
  2. VITAMIN TAB [Concomitant]
     Dates: start: 20070411
  3. ZOVIRAX [Concomitant]
     Indication: GENITAL HERPES
     Dosage: 200MG PER DAY
     Route: 048
     Dates: start: 20070210

REACTIONS (2)
  - DRUG EXPOSURE DURING PREGNANCY [None]
  - NORMAL NEWBORN [None]
